FAERS Safety Report 6050694-2 (Version None)
Quarter: 2009Q1

REPORT INFORMATION
  Report Type: 
  Country: None (occurrence: None)
  Receive Date: 20090121
  Receipt Date: 20081216
  Transmission Date: 20090719
  Serious: Yes (Other)
  Sender: FDA-Public Use
  Company Number: 8041132

PATIENT
  Age: 15 Year
  Sex: Female

DRUGS (5)
  1. KEPPRA [Suspect]
     Indication: STATUS EPILEPTICUS
     Dosage: 500 MG IV
     Route: 042
     Dates: start: 20081120, end: 20081120
  2. DIAZEPAM [Concomitant]
  3. LAMOTRIGINE [Concomitant]
  4. LORAZEPAM [Concomitant]
  5. PARALDEHYDE [Concomitant]

REACTIONS (2)
  - HYPOTENSION [None]
  - STATUS EPILEPTICUS [None]
